FAERS Safety Report 14640989 (Version 1)
Quarter: 2018Q1

REPORT INFORMATION
  Report Type: Spontaneous
  Country: US (occurrence: US)
  Receive Date: 20180314
  Receipt Date: 20180314
  Transmission Date: 20180509
  Serious: Yes (Hospitalization)
  Sender: FDA-Public Use
  Company Number: None

PATIENT
  Age: 18 Year
  Sex: Male
  Weight: 63.9 kg

DRUGS (5)
  1. LANSOPRAZOLE. [Concomitant]
     Active Substance: LANSOPRAZOLE
  2. MEPHYTON [Concomitant]
     Active Substance: PHYTONADIONE
  3. DOXYCYCLINE HYCLATE DR 150 MG TAB HERI [Suspect]
     Active Substance: DOXYCYCLINE HYCLATE
     Indication: ACNE
     Dosage: ?          QUANTITY:1 TABLET(S);?
     Route: 048
     Dates: start: 20171101, end: 20180120
  4. PREDNISONE. [Concomitant]
     Active Substance: PREDNISONE
  5. AZATHIOPRINE. [Concomitant]
     Active Substance: AZATHIOPRINE

REACTIONS (4)
  - Pyrexia [None]
  - Chills [None]
  - Cough [None]
  - Jaundice [None]

NARRATIVE: CASE EVENT DATE: 20180120
